FAERS Safety Report 5515249-4 (Version None)
Quarter: 2007Q4

REPORT INFORMATION
  Report Type: 
  Country: None (occurrence: None)
  Receive Date: 20071109
  Receipt Date: 20071031
  Transmission Date: 20080405
  Serious: Yes (Hospitalization)
  Sender: FDA-Public Use
  Company Number: 2007BI023375

PATIENT
  Age: 61 Year
  Sex: Female

DRUGS (1)
  1. NATALIZUMAB [Suspect]
     Indication: MULTIPLE SCLEROSIS
     Dosage: IV
     Route: 042
     Dates: start: 20070425

REACTIONS (5)
  - ABASIA [None]
  - HIP ARTHROPLASTY [None]
  - MOVEMENT DISORDER [None]
  - MULTIPLE SCLEROSIS [None]
  - NERVOUS SYSTEM DISORDER [None]
